FAERS Safety Report 18105515 (Version 1)
Quarter: 2020Q3

REPORT INFORMATION
  Report Type: Spontaneous
  Country: CA (occurrence: CA)
  Receive Date: 20200804
  Receipt Date: 20200804
  Transmission Date: 20201103
  Serious: Yes (Other)
  Sender: FDA-Public Use
  Company Number: CA-TEVA-2020-CA-1809079

PATIENT
  Age: 4 Decade
  Sex: Male

DRUGS (1)
  1. FLUOXETINE [Suspect]
     Active Substance: FLUOXETINE HYDROCHLORIDE
     Indication: MAJOR DEPRESSION
     Route: 048

REACTIONS (9)
  - Skin discolouration [Recovered/Resolved]
  - Muscular weakness [Recovered/Resolved]
  - Cerebral vasoconstriction [Recovered/Resolved]
  - Transient ischaemic attack [Recovered/Resolved]
  - Pain [Recovered/Resolved]
  - Gastrointestinal motility disorder [Recovered/Resolved]
  - Head discomfort [Recovered/Resolved]
  - Heart rate abnormal [Recovered/Resolved]
  - Pollakiuria [Recovered/Resolved]
